FAERS Safety Report 8788059 (Version 2)
Quarter: 2015Q1

REPORT INFORMATION
  Report Type: Report from Study
  Country: US (occurrence: US)
  Receive Date: 20120914
  Receipt Date: 20150323
  Transmission Date: 20150721
  Serious: Yes (Death)
  Sender: FDA-Public Use
  Company Number: US-ROCHE-1128089

PATIENT
  Sex: Female
  Weight: 77.27 kg

DRUGS (2)
  1. AVASTIN [Suspect]
     Active Substance: BEVACIZUMAB
     Indication: BREAST CANCER FEMALE
     Route: 065
     Dates: start: 20090514
  2. AVASTIN [Suspect]
     Active Substance: BEVACIZUMAB
     Indication: BONE CANCER

REACTIONS (1)
  - Death [Fatal]
